FAERS Safety Report 18653397 (Version 6)
Quarter: 2021Q1

REPORT INFORMATION
  Report Type: Spontaneous
  Country: JP (occurrence: JP)
  Receive Date: 20201222
  Receipt Date: 20210324
  Transmission Date: 20210419
  Serious: Yes (Hospitalization, Other)
  Sender: FDA-Public Use
  Company Number: JP-BRISTOL-MYERS SQUIBB COMPANY-BMS-2020-108555

PATIENT
  Age: 8 Decade
  Sex: Female

DRUGS (4)
  1. OPDIVO [Suspect]
     Active Substance: NIVOLUMAB
     Dosage: 240 MILLIGRAM
     Route: 041
     Dates: start: 20200618, end: 20201203
  2. OPDIVO [Suspect]
     Active Substance: NIVOLUMAB
     Dosage: 240 MILLIGRAM
     Route: 041
     Dates: start: 202003, end: 202006
  3. YERVOY [Suspect]
     Active Substance: IPILIMUMAB
     Indication: METASTATIC RENAL CELL CARCINOMA
     Dosage: 1 MILLIGRAM/KILOGRAM
     Route: 041
     Dates: start: 202003, end: 202006
  4. OPDIVO [Suspect]
     Active Substance: NIVOLUMAB
     Indication: METASTATIC RENAL CELL CARCINOMA
     Dosage: 240 MILLIGRAM
     Route: 041
     Dates: start: 20200618, end: 20201203

REACTIONS (1)
  - Gastroenteritis bacterial [Recovered/Resolved]

NARRATIVE: CASE EVENT DATE: 20201215
